FAERS Safety Report 20644368 (Version 2)
Quarter: 2023Q4

REPORT INFORMATION
  Report Type: Report from Study
  Country: CA (occurrence: CA)
  Receive Date: 20220328
  Receipt Date: 20231116
  Transmission Date: 20240109
  Serious: Yes (Hospitalization)
  Sender: FDA-Public Use
  Company Number: CA-BEIGENE, LTD-BGN-2021-006065

PATIENT

DRUGS (6)
  1. BRUKINSA [Interacting]
     Active Substance: ZANUBRUTINIB
     Indication: Mantle cell lymphoma
     Dosage: 320 MILLIGRAM, QD
     Route: 048
     Dates: start: 20211108
  2. BRUKINSA [Interacting]
     Active Substance: ZANUBRUTINIB
     Dosage: 80 MILLIGRAM, BID
     Route: 048
     Dates: start: 20211108
  3. APIXABAN [Concomitant]
     Active Substance: APIXABAN
  4. DEXAMETHASONE [Concomitant]
     Active Substance: DEXAMETHASONE
     Dosage: UNK
     Dates: end: 20211115
  5. FLUCONAZOLE [Interacting]
     Active Substance: FLUCONAZOLE
     Indication: Product used for unknown indication
  6. VENCLEXTA [Concomitant]
     Active Substance: VENETOCLAX
     Route: 048

REACTIONS (6)
  - Influenza like illness [Unknown]
  - Asthenia [Unknown]
  - Drug interaction [Unknown]
  - Feeling abnormal [Unknown]
  - Blood glucose increased [Unknown]
  - Blood magnesium decreased [Unknown]

NARRATIVE: CASE EVENT DATE: 20211115
